FAERS Safety Report 9274948 (Version 1)
Quarter: 2013Q2

REPORT INFORMATION
  Report Type: Spontaneous
  Country: US (occurrence: US)
  Receive Date: 20130507
  Receipt Date: 20130507
  Transmission Date: 20140414
  Serious: Yes (Hospitalization, Other)
  Sender: FDA-Public Use
  Company Number: US-BAYER-2013-054664

PATIENT
  Age: 25 Year
  Sex: Female

DRUGS (8)
  1. BEYAZ [Suspect]
  2. BUMEX [Concomitant]
  3. CALCIUM [Concomitant]
  4. PEPCID [Concomitant]
  5. PREDNISONE [Concomitant]
  6. LIPITOR [Concomitant]
  7. VICODIN [Concomitant]
  8. CEFTIN [Concomitant]

REACTIONS (2)
  - Pulmonary embolism [None]
  - Deep vein thrombosis [None]
